FAERS Safety Report 9621050 (Version 2)
Quarter: 2013Q4

REPORT INFORMATION
  Report Type: Report from Study
  Country: US (occurrence: US)
  Receive Date: 20131015
  Receipt Date: 20131220
  Transmission Date: 20140711
  Serious: Yes (Hospitalization)
  Sender: FDA-Public Use
  Company Number: US-BAYER-2013-121160

PATIENT
  Age: 57 Year
  Sex: Female

DRUGS (8)
  1. STIVARGA [Suspect]
     Indication: COLON CANCER
     Dosage: 160 MG, DAILY
     Route: 048
     Dates: start: 201309, end: 201309
  2. PREDNISONE [Concomitant]
     Indication: COUGH
     Dosage: 10MG PER DAY
  3. PREDNISONE [Concomitant]
     Indication: DYSPNOEA
  4. VICODIN [Concomitant]
     Indication: MUSCULOSKELETAL CHEST PAIN
     Dosage: UNK UNK, PRN
  5. ATIVAN [Concomitant]
     Indication: ANXIETY
     Dosage: UNK UNK, PRN
  6. ATIVAN [Concomitant]
     Indication: HYPERVENTILATION
  7. DYAZIDE [Concomitant]
     Indication: PALPITATIONS
  8. BENADRYL [Concomitant]

REACTIONS (15)
  - Stomatitis [None]
  - Oral mucosal erythema [None]
  - Tongue ulceration [None]
  - Tongue discolouration [None]
  - Pharyngeal ulceration [None]
  - Pharyngeal erythema [None]
  - Thermal burn [None]
  - Aphagia [None]
  - Drug hypersensitivity [Recovered/Resolved]
  - Rash [Recovered/Resolved]
  - Hypersensitivity [None]
  - Dyspnoea [None]
  - Wheezing [None]
  - Cough [None]
  - Chest discomfort [None]
